FAERS Safety Report 9378836 (Version 5)
Quarter: 2013Q4

REPORT INFORMATION
  Report Type: Report from Study
  Country: AU (occurrence: AU)
  Receive Date: 20130702
  Receipt Date: 20131114
  Transmission Date: 20140711
  Serious: Yes (Other)
  Sender: FDA-Public Use
  Company Number: AU-BIOGENIDEC-2013BI057765

PATIENT
  Age: 53 Year
  Sex: Female

DRUGS (4)
  1. TYSABRI [Suspect]
     Indication: RELAPSING-REMITTING MULTIPLE SCLEROSIS
     Route: 042
     Dates: start: 20090407, end: 20130412
  2. VITAMIN D3 [Concomitant]
  3. GABAPENTIN [Concomitant]
  4. PEGFILGRASTIM [Concomitant]
     Indication: BONE MARROW FAILURE
     Dates: start: 20130624

REACTIONS (2)
  - Breast cancer [Not Recovered/Not Resolved]
  - Nausea [Unknown]
